FAERS Safety Report 8079116-7 (Version None)
Quarter: 2012Q1

REPORT INFORMATION
  Report Type: 
  Country: None (occurrence: None)
  Receive Date: 20120128
  Receipt Date: 20110818
  Transmission Date: 20120608
  Serious: No
  Sender: FDA-Public Use
  Company Number: US-ABBOTT-11P-163-0847824-00

PATIENT
  Sex: Female

DRUGS (3)
  1. 23 DRUG(S) [Concomitant]
     Indication: PRODUCT USED FOR UNKNOWN INDICATION
  2. IRON [Concomitant]
     Indication: PRODUCT USED FOR UNKNOWN INDICATION
  3. HUMIRA [Suspect]
     Indication: CROHN'S DISEASE
     Dates: start: 20110330, end: 20110727

REACTIONS (8)
  - PRODUCT OUTER PACKAGING ISSUE [None]
  - DEVICE MALFUNCTION [None]
  - CEREBRAL DISORDER [None]
  - INJECTION SITE PAIN [None]
  - HAEMORRHAGE [None]
  - INCORRECT DOSE ADMINISTERED [None]
  - CROHN'S DISEASE [None]
  - STRESS [None]
